FAERS Safety Report 4596020-7 (Version None)
Quarter: 2005Q1

REPORT INFORMATION
  Report Type: 
  Country: None (occurrence: None)
  Receive Date: 20050224
  Receipt Date: 20050215
  Transmission Date: 20050727
  Serious: Yes (Death, Other)
  Sender: FDA-Public Use
  Company Number: 2005-01-1482

PATIENT
  Age: 59 Year
  Sex: Male
  Weight: 75 kg

DRUGS (5)
  1. PEG-INTRON [Suspect]
     Indication: HEPATITIS C
     Dosage: 100 MCG QW SUBCUTANEOUS
     Route: 058
     Dates: start: 20050115, end: 20050115
  2. REBETOL [Suspect]
     Indication: HEPATITIS C
     Dosage: 800 MG ORAL
     Route: 048
     Dates: start: 20050115, end: 20050118
  3. HERBAL MEDICATION NOS GRANULES [Suspect]
     Indication: INFLUENZA LIKE ILLNESS
     Dosage: 7.5 G ORAL
     Route: 048
     Dates: start: 20050115, end: 20050118
  4. HERBAL MEDICATION NOS GRANULES [Suspect]
     Indication: PROPHYLAXIS
     Dosage: 7.5 G ORAL
     Route: 048
     Dates: start: 20050115, end: 20050118
  5. PARIET (RABEPRAZOLE SODIUM) TABLETS [Concomitant]

REACTIONS (8)
  - CARDIO-RESPIRATORY ARREST [None]
  - CEREBRAL HAEMORRHAGE [None]
  - CEREBROVASCULAR ACCIDENT [None]
  - CIRCULATORY COLLAPSE [None]
  - COMA [None]
  - HYPERTENSION [None]
  - LOSS OF CONSCIOUSNESS [None]
  - SNORING [None]
